FAERS Safety Report 4331173-7 (Version None)
Quarter: 2004Q1

REPORT INFORMATION
  Report Type: 
  Country: None (occurrence: None)
  Receive Date: 20040331
  Receipt Date: 20040325
  Transmission Date: 20041129
  Serious: Yes (Death)
  Sender: FDA-Public Use
  Company Number: USA-2003-0011956

PATIENT
  Age: 25 Year
  Sex: Male

DRUGS (4)
  1. OXYCODONE HCL [Suspect]
  2. COCAINE(COCAINE) [Suspect]
  3. DIAZEPAM [Suspect]
  4. ALPRAZOLAM [Concomitant]

REACTIONS (11)
  - CARDIOMEGALY [None]
  - COMA [None]
  - DEPRESSION [None]
  - DRUG SCREEN POSITIVE [None]
  - DRUG TOXICITY [None]
  - FEELING COLD [None]
  - HEPATIC STEATOSIS [None]
  - HEPATOMEGALY [None]
  - OEDEMA [None]
  - OVERDOSE [None]
  - PULMONARY CONGESTION [None]
